FAERS Safety Report 23736928 (Version 2)
Quarter: 2024Q2

REPORT INFORMATION
  Report Type: Spontaneous
  Country: ES (occurrence: ES)
  Receive Date: 20240412
  Receipt Date: 20240613
  Transmission Date: 20240716
  Serious: Yes (Other)
  Sender: FDA-Public Use
  Company Number: ES-SUN PHARMACEUTICAL INDUSTRIES LTD-2024R1-440268

PATIENT
  Age: 95 Year
  Sex: Male

DRUGS (8)
  1. LEVOFLOXACIN [Suspect]
     Active Substance: LEVOFLOXACIN
     Indication: Eye abscess
     Dosage: 500 MILLIGRAM, QD
     Dates: start: 20240301, end: 20240304
  2. SERTRALINE [Suspect]
     Active Substance: SERTRALINE HYDROCHLORIDE
     Indication: Depression
     Dosage: 50 MILLIGRAM, QD
     Route: 048
     Dates: start: 20240304
  3. LORMETAZEPAM [Concomitant]
     Active Substance: LORMETAZEPAM
     Indication: Insomnia
     Dosage: 1 MILLIGRAM
     Route: 048
     Dates: start: 20240304
  4. VANCOMYCIN [Concomitant]
     Active Substance: VANCOMYCIN
     Indication: Eye abscess
     Dosage: 1 DROP
     Route: 047
  5. ATROPINE SULFATE [Concomitant]
     Active Substance: ATROPINE SULFATE
     Indication: Eye abscess
     Dosage: 1 DROP
     Route: 047
     Dates: start: 20240301
  6. CEFTAZIDIME [Concomitant]
     Active Substance: CEFTAZIDIME
     Indication: Eye abscess
     Dosage: 1 DROP
     Route: 047
  7. CEFADROXIL MONOHYDRATE [Concomitant]
     Active Substance: CEFADROXIL
     Indication: Eye abscess
     Dosage: 500 MILLIGRAM
     Route: 048
  8. SERTRALINE [Concomitant]
     Active Substance: SERTRALINE HYDROCHLORIDE
     Indication: Depression
     Dosage: 50 MILLIGRAM
     Route: 048

REACTIONS (1)
  - Ventricular tachycardia [Recovered/Resolved]
